FAERS Safety Report 5885778-2 (Version None)
Quarter: 2008Q3

REPORT INFORMATION
  Report Type: 
  Country: None (occurrence: None)
  Receive Date: 20080917
  Receipt Date: 20080908
  Transmission Date: 20090109
  Serious: Yes (Other)
  Sender: FDA-Public Use
  Company Number: US-ELI_LILLY_AND_COMPANY-US200809001788

PATIENT
  Age: 65 Year
  Sex: Male

DRUGS (2)
  1. HUMULIN 70/30 [Suspect]
     Dates: start: 20080901
  2. HUMULIN 70/30 [Suspect]
     Dosage: UNK, UNK
     Dates: start: 19930101, end: 20080901

REACTIONS (5)
  - BLOOD GLUCOSE DECREASED [None]
  - BLOOD GLUCOSE INCREASED [None]
  - EYE HAEMORRHAGE [None]
  - STRESS [None]
  - VISUAL IMPAIRMENT [None]
